FAERS Safety Report 20710371 (Version 2)
Quarter: 2024Q4

REPORT INFORMATION
  Report Type: Report from Study
  Country: IL (occurrence: IL)
  Receive Date: 20220414
  Receipt Date: 20241106
  Transmission Date: 20250115
  Serious: Yes (Life-Threatening)
  Sender: JOHNSON AND JOHNSON
  Company Number: IL-JNJFOC-20220412164

PATIENT
  Age: 63 Year
  Sex: Male
  Weight: 80 kg

DRUGS (2)
  1. ESKETAMINE [Suspect]
     Active Substance: ESKETAMINE
     Indication: Depression
     Dosage: (2 DEVICES)
     Dates: start: 20220110, end: 20220110
  2. ESKETAMINE [Suspect]
     Active Substance: ESKETAMINE
     Dosage: (3 DEVICES), ADDITIONAL THERAPY DATES: 17-JAN-2022, 19-JAN-2022, 24-JAN-2022, 26-JAN-2022, 31-JAN-20
     Dates: start: 20220112, end: 20220228

REACTIONS (1)
  - Suicide attempt [Recovered/Resolved]

NARRATIVE: CASE EVENT DATE: 20220307
